FAERS Safety Report 23232673 (Version 1)
Quarter: 2023Q4

REPORT INFORMATION
  Report Type: Spontaneous
  Country: CO (occurrence: None)
  Receive Date: 20231128
  Receipt Date: 20231128
  Transmission Date: 20240110
  Serious: Yes (Other)
  Sender: FDA-Public Use
  Company Number: CO-ROCHE-3464438

PATIENT
  Sex: Male

DRUGS (1)
  1. VISMODEGIB [Suspect]
     Active Substance: VISMODEGIB
     Indication: Basal cell carcinoma metastatic
     Dosage: FREQUENCY WAS NOT REPORTED
     Route: 048
     Dates: start: 2020, end: 202310

REACTIONS (1)
  - Disease progression [Unknown]
